FAERS Safety Report 11266721 (Version 6)
Quarter: 2015Q4

REPORT INFORMATION
  Report Type: Spontaneous
  Country: IT (occurrence: IT)
  Receive Date: 20150713
  Receipt Date: 20151124
  Transmission Date: 20160304
  Serious: Yes (Hospitalization)
  Sender: FDA-Public Use
  Company Number: IT-JNJFOC-20150704413

PATIENT
  Age: 70 Year
  Sex: Female
  Weight: 92 kg

DRUGS (2)
  1. SIMEPREVIR [Suspect]
     Active Substance: SIMEPREVIR
     Indication: HEPATIC CIRRHOSIS
     Route: 048
     Dates: start: 20150519, end: 20150616
  2. SOFOSBUVIR [Suspect]
     Active Substance: SOFOSBUVIR
     Indication: HEPATIC CIRRHOSIS
     Route: 048
     Dates: start: 20150519, end: 20150626

REACTIONS (3)
  - Transaminases increased [Unknown]
  - Asthenia [Unknown]
  - Hyperbilirubinaemia [Unknown]

NARRATIVE: CASE EVENT DATE: 20150625
